FAERS Safety Report 17467358 (Version 4)
Quarter: 2020Q2

REPORT INFORMATION
  Report Type: Spontaneous
  Country: US (occurrence: US)
  Receive Date: 20200227
  Receipt Date: 20200414
  Transmission Date: 20200713
  Serious: No
  Sender: FDA-Public Use
  Company Number: US-PFIZER INC-2020080318

PATIENT
  Age: 45 Year
  Sex: Female
  Weight: 68 kg

DRUGS (3)
  1. PREDNISONE. [Concomitant]
     Active Substance: PREDNISONE
     Dosage: 3 MG, DAILY
     Dates: start: 2000
  2. LEVOTHYROXINE. [Concomitant]
     Active Substance: LEVOTHYROXINE
     Dosage: 88 UG, DAILY
     Dates: start: 2000
  3. GENOTROPIN [Suspect]
     Active Substance: SOMATROPIN
     Dosage: 1.2 MG, DAILY
     Dates: start: 20200208

REACTIONS (5)
  - Wrong technique in device usage process [Recovered/Resolved]
  - Device leakage [Recovered/Resolved]
  - Accidental exposure to product [Recovered/Resolved]
  - Sinusitis [Unknown]
  - Malaise [Unknown]

NARRATIVE: CASE EVENT DATE: 20200226
